FAERS Safety Report 7269751-8 (Version None)
Quarter: 2011Q1

REPORT INFORMATION
  Report Type: 
  Country: None (occurrence: None)
  Receive Date: 20110202
  Receipt Date: 20110127
  Transmission Date: 20110831
  Serious: Yes (Other)
  Sender: FDA-Public Use
  Company Number: US-PFIZER INC-2011020848

PATIENT
  Sex: Male

DRUGS (1)
  1. CHANTIX [Suspect]
     Dosage: UNK
     Dates: start: 20080204

REACTIONS (6)
  - MEMORY IMPAIRMENT [None]
  - CONVULSION [None]
  - PANIC DISORDER [None]
  - HALLUCINATION, VISUAL [None]
  - MENTAL DISORDER [None]
  - ANXIETY [None]
